FAERS Safety Report 9262800 (Version 3)
Quarter: 2014Q1

REPORT INFORMATION
  Report Type: Spontaneous
  Country: GB (occurrence: None)
  Receive Date: 20130426
  Receipt Date: 20140324
  Transmission Date: 20141002
  Serious: Yes (Other)
  Sender: FDA-Public Use
  Company Number: 2013MPI00138

PATIENT
  Age: 80 Year
  Sex: Male

DRUGS (1)
  1. ADCETRIS [Suspect]
     Indication: HODGKIN^S DISEASE

REACTIONS (4)
  - Neuropathy peripheral [None]
  - Cerebrovascular accident [None]
  - Transient ischaemic attack [None]
  - Lack of spontaneous speech [None]
